FAERS Safety Report 5333458-4 (Version None)
Quarter: 2007Q2

REPORT INFORMATION
  Report Type: 
  Country: None (occurrence: None)
  Receive Date: 20070522
  Receipt Date: 20070522
  Transmission Date: 20071010
  Serious: Yes (Other)
  Sender: FDA-Public Use
  Company Number: None

PATIENT
  Age: 29 Year
  Sex: Female
  Weight: 76.2043 kg

DRUGS (2)
  1. LUPRON [Suspect]
     Indication: ADENOMYOSIS
     Dosage: ONCE EVERY MONTH
     Dates: start: 20070105, end: 20070428
  2. LUPRON [Suspect]
     Indication: ENDOMETRIOSIS
     Dosage: ONCE EVERY MONTH
     Dates: start: 20070105, end: 20070428

REACTIONS (10)
  - ARTHRALGIA [None]
  - BLADDER DISORDER [None]
  - BONE PAIN [None]
  - FEAR OF DISEASE [None]
  - HEADACHE [None]
  - MALAISE [None]
  - MOOD ALTERED [None]
  - MYALGIA [None]
  - NIGHT SWEATS [None]
  - RENAL DISORDER [None]
